FAERS Safety Report 11442955 (Version 1)
Quarter: 2015Q3

REPORT INFORMATION
  Report Type: Spontaneous
  Country: US (occurrence: US)
  Receive Date: 20150901
  Receipt Date: 20150901
  Transmission Date: 20151125
  Serious: No
  Sender: FDA-Public Use
  Company Number: US-ASTRAZENECA-2015SE83508

PATIENT
  Sex: Female
  Weight: 68 kg

DRUGS (8)
  1. FASLODEX [Suspect]
     Active Substance: FULVESTRANT
     Indication: BREAST CANCER FEMALE
     Dosage: A SHOT IN EACH HIP EVERY 2 WEEKS FOR 6 WEEKS
     Route: 030
  2. VITAMINS [Concomitant]
     Active Substance: VITAMINS
  3. AROMASIN [Suspect]
     Active Substance: EXEMESTANE
     Indication: BREAST CANCER FEMALE
     Route: 048
     Dates: start: 201501, end: 201505
  4. AROMASIN [Suspect]
     Active Substance: EXEMESTANE
     Indication: BREAST CANCER FEMALE
     Route: 048
     Dates: start: 201505
  5. ANASTROZOLE. [Concomitant]
     Active Substance: ANASTROZOLE
     Dosage: GENERIC, 1MG BY MOUTH DAILY.
     Route: 048
  6. AROMASIN [Suspect]
     Active Substance: EXEMESTANE
     Indication: BREAST CANCER FEMALE
     Route: 048
     Dates: start: 201005
  7. BLOOD PRESSURE PILL [Concomitant]
  8. FASLODEX [Suspect]
     Active Substance: FULVESTRANT
     Indication: BREAST CANCER FEMALE
     Dosage: ONCE A MONTH FOR THE LAST TWO MONTHS
     Route: 030

REACTIONS (4)
  - Dyspepsia [Recovered/Resolved]
  - Arthralgia [Recovered/Resolved]
  - Insomnia [Unknown]
  - Product quality issue [Unknown]
